FAERS Safety Report 17376829 (Version 1)
Quarter: 2020Q1

REPORT INFORMATION
  Report Type: Spontaneous
  Country: US (occurrence: US)
  Receive Date: 20200122
  Receipt Date: 20200122
  Transmission Date: 20200409
  Serious: No
  Sender: FDA-Public Use
  Company Number: None

PATIENT

DRUGS (1)
  1. DAPTOMYCIN INJECTION, 500MG/VIAL [Suspect]
     Active Substance: DAPTOMYCIN

REACTIONS (2)
  - Tremor [None]
  - Chills [None]

NARRATIVE: CASE EVENT DATE: 20200112
